FAERS Safety Report 5148128-5 (Version None)
Quarter: 2006Q4

REPORT INFORMATION
  Report Type: 
  Country: None (occurrence: None)
  Receive Date: 20061106
  Receipt Date: 20060915
  Transmission Date: 20070319
  Serious: Yes (Death)
  Sender: FDA-Public Use
  Company Number: CLOF-10360

PATIENT
  Age: 16 Year
  Weight: 74.8 kg

DRUGS (1)
  1. CLOFARABINE [Suspect]
     Indication: ACUTE LYMPHOCYTIC LEUKAEMIA
     Dosage: 52 MG QD IV
     Route: 042

REACTIONS (1)
  - DEATH [None]
